FAERS Safety Report 5534076-5 (Version None)
Quarter: 2007Q4

REPORT INFORMATION
  Report Type: 
  Country: None (occurrence: None)
  Receive Date: 20071129
  Receipt Date: 20071129
  Transmission Date: 20080405
  Serious: Yes (Death)
  Sender: FDA-Public Use
  Company Number: None

PATIENT
  Age: 56 Year
  Sex: Female
  Weight: 80 kg

DRUGS (8)
  1. BEVACIZUMAB (GENENTECH) LOT # N76770 [Suspect]
     Indication: GLIOBLASTOMA MULTIFORME
     Dosage: 805MG IV EVERY 2 WEEKS
     Route: 042
     Dates: start: 20070813
  2. BEVACIZUMAB (GENENTECH) LOT # N76770 [Suspect]
     Indication: GLIOBLASTOMA MULTIFORME
     Dosage: 805MG IV EVERY 2 WEEKS
     Route: 042
     Dates: start: 20070817
  3. TEMOZOLOMIDE [Suspect]
     Indication: GLIOBLASTOMA MULTIFORME
     Dosage: 90 MG PO DAILY
     Route: 048
     Dates: start: 20070817, end: 20070910
  4. PROTONIX [Concomitant]
  5. SYNTHROIF [Concomitant]
  6. ASPIRIN [Concomitant]
  7. KEPPRA [Concomitant]
  8. DECADRON [Concomitant]

REACTIONS (6)
  - INFLAMMATION [None]
  - MENTAL STATUS CHANGES [None]
  - NECROSIS [None]
  - PNEUMONIA BACTERIAL [None]
  - PNEUMONIA FUNGAL [None]
  - PULMONARY MASS [None]
